FAERS Safety Report 14980135 (Version 4)
Quarter: 2023Q1

REPORT INFORMATION
  Report Type: Report from Study
  Country: DE (occurrence: DE)
  Receive Date: 20180606
  Receipt Date: 20230103
  Transmission Date: 20230417
  Serious: Yes (Hospitalization)
  Sender: FDA-Public Use
  Company Number: DE-ROCHE-1984653

PATIENT
  Age: 24 Year
  Sex: Male

DRUGS (9)
  1. UNSPECIFIED INGREDIENT [Suspect]
     Active Substance: UNSPECIFIED INGREDIENT
     Dosage: NO DOSE GIVEN
  2. METHOTREXATE SODIUM [Suspect]
     Active Substance: METHOTREXATE SODIUM
     Indication: Rheumatoid arthritis
     Dosage: 10 MG, WEEKLY
     Route: 065
     Dates: end: 201712
  3. TOCILIZUMAB [Suspect]
     Active Substance: TOCILIZUMAB
     Indication: Rheumatoid arthritis
     Dosage: 480 MG, 4X/WEEK
     Route: 042
     Dates: end: 20180404
  4. TOCILIZUMAB [Suspect]
     Active Substance: TOCILIZUMAB
     Indication: Rheumatoid arthritis
     Dosage: 480 MG, 4X/WEEK
     Route: 042
     Dates: end: 20180404
  5. TOCILIZUMAB [Suspect]
     Active Substance: TOCILIZUMAB
     Dosage: 162 MG/ONCE DAILY UNTIL 01JUL2022 CURRENTLY NO BASIC THERAPY; SASP 500 MG/D FROM JUL2022 TO JUL2022
     Route: 058
     Dates: start: 201611, end: 20220701
  6. KINERET [Suspect]
     Active Substance: ANAKINRA
     Indication: Rheumatoid arthritis
     Route: 065
     Dates: start: 201806, end: 201806
  7. OLUMIANT [Concomitant]
     Active Substance: BARICITINIB
     Indication: Rheumatoid arthritis
     Dates: start: 201806, end: 201810
  8. SULFASALAZINE [Concomitant]
     Active Substance: SULFASALAZINE
  9. KEVZARA [Concomitant]
     Active Substance: SARILUMAB
     Dosage: 200 MG, 2X/WEEK
     Dates: start: 20220808, end: 20221114

REACTIONS (7)
  - Nasopharyngitis [Unknown]
  - Solar urticaria [Unknown]
  - Condition aggravated [Recovered/Resolved]
  - Rheumatoid arthritis [Recovered/Resolved]
  - Rheumatoid arthritis [Recovered/Resolved]
  - Vomiting [Unknown]
  - Rash [Unknown]

NARRATIVE: CASE EVENT DATE: 20170115
